FAERS Safety Report 8148321-3 (Version None)
Quarter: 2012Q1

REPORT INFORMATION
  Report Type: 
  Country: None (occurrence: None)
  Receive Date: 20120218
  Receipt Date: 20110517
  Transmission Date: 20120608
  Serious: No
  Sender: FDA-Public Use
  Company Number: US-ALLERGAN-1106793US

PATIENT
  Sex: Male

DRUGS (2)
  1. BOTOX COSMETIC [Suspect]
     Dosage: UNK UNITS, RETOUCH
     Dates: start: 20110427, end: 20110427
  2. BOTOX COSMETIC [Suspect]
     Indication: SKIN WRINKLING
     Dosage: UNK UNITS, SINGLE
     Dates: start: 20110418, end: 20110418

REACTIONS (1)
  - MUSCLE TWITCHING [None]
